FAERS Safety Report 9781333 (Version 2)
Quarter: 2014Q1

REPORT INFORMATION
  Report Type: Report from Study
  Country: JP (occurrence: JP)
  Receive Date: 20131224
  Receipt Date: 20140103
  Transmission Date: 20141002
  Serious: Yes (Hospitalization)
  Sender: FDA-Public Use
  Company Number: JP-EXELIXIS-XL18413003771

PATIENT
  Age: 74 Year
  Sex: Male
  Weight: 44.1 kg

DRUGS (6)
  1. XL184 [Suspect]
     Indication: NON-SMALL CELL LUNG CANCER
     Dosage: 60 MG, QD
     Route: 048
     Dates: start: 20130822, end: 20130926
  2. XL184 [Suspect]
     Dosage: 40 MG, QD
     Route: 048
     Dates: start: 20130927, end: 20131007
  3. XL184 [Suspect]
     Dosage: 40 MG, QD
     Route: 048
     Dates: start: 20131019, end: 20131128
  4. HARNAL [Concomitant]
  5. KERATINAMIN [Concomitant]
  6. KENALOG IN ORABASE [Concomitant]

REACTIONS (3)
  - Cardiac failure [Recovered/Resolved]
  - Pneumocystis jirovecii pneumonia [Not Recovered/Not Resolved]
  - Non-small cell lung cancer [Not Recovered/Not Resolved]
